FAERS Safety Report 4834458-0 (Version None)
Quarter: 2005Q4

REPORT INFORMATION
  Report Type: 
  Country: None (occurrence: None)
  Receive Date: 20051122
  Receipt Date: 20041124
  Transmission Date: 20060501
  Serious: No
  Sender: FDA-Public Use
  Company Number: US-BRISTOL-MYERS SQUIBB COMPANY-12775326

PATIENT
  Age: 53 Year
  Sex: Female
  Weight: 81 kg

DRUGS (2)
  1. PRAVACHOL [Suspect]
     Indication: BLOOD CHOLESTEROL INCREASED
     Route: 048
     Dates: end: 20041122
  2. PREVACID [Concomitant]

REACTIONS (4)
  - HEADACHE [None]
  - HEPATIC ENZYME ABNORMAL [None]
  - MUSCULOSKELETAL STIFFNESS [None]
  - MYALGIA [None]
